FAERS Safety Report 16688402 (Version 5)
Quarter: 2019Q4

REPORT INFORMATION
  Report Type: Spontaneous
  Country: JP (occurrence: JP)
  Receive Date: 20190809
  Receipt Date: 20191219
  Transmission Date: 20200122
  Serious: Yes (Hospitalization, Other)
  Sender: FDA-Public Use
  Company Number: JP-AMGEN-JPNSP2019125362

PATIENT
  Age: 86 Year
  Sex: Female
  Weight: 45 kg

DRUGS (16)
  1. NEOXY [Concomitant]
     Active Substance: OXYBUTYNIN CHLORIDE
     Dosage: 73.5 MILLIGRAM, QD (TAPE)
     Dates: start: 20190728, end: 20190728
  2. LANSOPRAZOLE. [Concomitant]
     Active Substance: LANSOPRAZOLE
     Indication: GASTROOESOPHAGEAL REFLUX DISEASE
     Dosage: UNK UNK, QD (15)
  3. DEXTROMETHORPHAN HYDROBROMIDE. [Concomitant]
     Active Substance: DEXTROMETHORPHAN HYDROBROMIDE
     Dosage: 15 MILLIGRAM, QD
     Dates: end: 20190728
  4. LEXAPRO [Suspect]
     Active Substance: ESCITALOPRAM OXALATE
     Indication: DEPRESSION
     Dosage: 10 MILLIGRAM, QD
     Route: 065
     Dates: start: 2019
  5. EDIROL [Concomitant]
     Active Substance: ELDECALCITOL
     Indication: OSTEOPOROSIS
     Dosage: 0.75 MICROGRAM, QD
  6. LUNESTA [Concomitant]
     Active Substance: ESZOPICLONE
     Dosage: 2 MILLIGRAM, QD
  7. TICLOPIDINE [TICLOPIDINE HYDROCHLORIDE] [Concomitant]
     Indication: CEREBRAL INFARCTION
     Dosage: 100 MILLIGRAM, BID
  8. PANALDINE [Concomitant]
     Active Substance: TICLOPIDINE HYDROCHLORIDE
     Dosage: 200 MILLIGRAM, QD
     Dates: start: 20190430
  9. BETANIS [Concomitant]
     Active Substance: MIRABEGRON
     Indication: HYPERTONIC BLADDER
     Dosage: 50 MILLIGRAM, QD
  10. EVENITY [Suspect]
     Active Substance: ROMOSOZUMAB-AQQG
     Indication: OSTEOPOROSIS
     Dosage: 210 MILLIGRAM
     Route: 058
     Dates: start: 20190516, end: 20190613
  11. EVISTA [Concomitant]
     Active Substance: RALOXIFENE HYDROCHLORIDE
     Indication: OSTEOPOROSIS
     Dosage: 60 MILLIGRAM, QD
     Dates: start: 20190516, end: 20190516
  12. POLAPREZINC [Concomitant]
     Active Substance: POLAPREZINC
     Dosage: 150 MILLIGRAM, QD
     Dates: start: 20190728, end: 20190728
  13. CELECOX [Concomitant]
     Active Substance: CELECOXIB
     Indication: BACK PAIN
     Dosage: 100 MILLIGRAM, BID
     Route: 065
     Dates: start: 20190616
  14. RELVAR [Concomitant]
     Active Substance: FLUTICASONE FUROATE\VILANTEROL TRIFENATATE
     Indication: ASTHMA
     Dosage: 200, UNK, QD
     Dates: start: 20190728
  15. MAGMITT [Concomitant]
     Active Substance: MAGNESIUM OXIDE
     Dosage: 1320 MILLIGRAM, QD
  16. RABEPRAZOLE NA [Concomitant]
     Active Substance: RABEPRAZOLE SODIUM
     Dosage: 10 MILLIGRAM, QD

REACTIONS (5)
  - Decreased appetite [Unknown]
  - Hyponatraemia [Recovering/Resolving]
  - Depression [Unknown]
  - Head injury [Unknown]
  - Fall [Recovering/Resolving]

NARRATIVE: CASE EVENT DATE: 20190613
